FAERS Safety Report 7472596-7 (Version None)
Quarter: 2011Q2

REPORT INFORMATION
  Report Type: 
  Country: None (occurrence: None)
  Receive Date: 20110502
  Receipt Date: 20110415
  Transmission Date: 20111010
  Serious: Yes (Other)
  Sender: FDA-Public Use
  Company Number: 023537

PATIENT
  Sex: Female

DRUGS (2)
  1. LACOSAMIDE [Suspect]
     Dosage: (100 MG BID, DOSE PER INTAKE: 2X50 MG), (100 MG BID)
     Dates: start: 20090701
  2. PLAVIX [Suspect]

REACTIONS (2)
  - TOXIC SKIN ERUPTION [None]
  - DERMATOSIS [None]
